FAERS Safety Report 7573073-5 (Version None)
Quarter: 2011Q2

REPORT INFORMATION
  Report Type: 
  Country: None (occurrence: None)
  Receive Date: 20110620
  Receipt Date: 20110603
  Transmission Date: 20111010
  Serious: Yes (Hospitalization, Other)
  Sender: FDA-Public Use
  Company Number: 2011MA005706

PATIENT
  Age: 62 Year
  Sex: Female
  Weight: 45 kg

DRUGS (1)
  1. PROPYLTHIOURACIL TAB [Suspect]
     Indication: HYPERTHYROIDISM
     Dosage: 300 MG; OD; PO
     Route: 048
     Dates: start: 19990701

REACTIONS (8)
  - DYSPNOEA [None]
  - ANAEMIA [None]
  - RENAL IMPAIRMENT [None]
  - OCCULT BLOOD POSITIVE [None]
  - VASCULITIS NECROTISING [None]
  - PULMONARY ALVEOLAR HAEMORRHAGE [None]
  - GLOMERULOSCLEROSIS [None]
  - HAEMATURIA [None]
